FAERS Safety Report 11216911 (Version 1)
Quarter: 2015Q2

REPORT INFORMATION
  Report Type: Spontaneous
  Country: US (occurrence: US)
  Receive Date: 20150624
  Receipt Date: 20150624
  Transmission Date: 20150821
  Serious: Yes (Hospitalization)
  Sender: FDA-Public Use
  Company Number: US-CELGENE-USA-2015063289

PATIENT
  Sex: Female

DRUGS (1)
  1. OTEZLA [Suspect]
     Active Substance: APREMILAST
     Indication: PSORIATIC ARTHROPATHY
     Route: 048

REACTIONS (4)
  - Hypotension [Unknown]
  - Stress cardiomyopathy [Unknown]
  - Pulmonary oedema [Unknown]
  - Ophthalmoplegia [Unknown]

NARRATIVE: CASE EVENT DATE: 2015
